FAERS Safety Report 4421130-4 (Version None)
Quarter: 2004Q3

REPORT INFORMATION
  Report Type: 
  Country: None (occurrence: None)
  Receive Date: 20040804
  Receipt Date: 20040722
  Transmission Date: 20050211
  Serious: Yes (Death)
  Sender: FDA-Public Use
  Company Number: US-JNJFOC-20040706534

PATIENT
  Age: 50 Year
  Sex: Female
  Weight: 92.0802 kg

DRUGS (4)
  1. TYLENOL W/ CODEINE NO. 3 [Suspect]
     Indication: TOOTH ABSCESS
     Dosage: ORAL
     Route: 048
     Dates: start: 20040514, end: 20040516
  2. CLOZAPINE [Suspect]
     Indication: SCHIZOAFFECTIVE DISORDER
     Dosage: 200 MG , 3 IN 1 DAY, ORAL
     Route: 048
     Dates: start: 20030212, end: 20040516
  3. DIAZEPAM [Concomitant]
  4. DEPAKOTE [Concomitant]

REACTIONS (3)
  - INTENTIONAL OVERDOSE [None]
  - MULTIPLE DRUG OVERDOSE [None]
  - SUDDEN DEATH [None]
